FAERS Safety Report 24314564 (Version 1)
Quarter: 2024Q3

REPORT INFORMATION
  Report Type: Spontaneous
  Country: NO (occurrence: NO)
  Receive Date: 20240913
  Receipt Date: 20240913
  Transmission Date: 20241016
  Serious: Yes (Disabling, Other)
  Sender: NOVO NORDISK
  Company Number: None

PATIENT
  Sex: Male
  Weight: 92 kg

DRUGS (1)
  1. OZEMPIC [Suspect]
     Active Substance: SEMAGLUTIDE
     Indication: Type 2 diabetes mellitus
     Dosage: 1 MG, QW
     Dates: start: 2018

REACTIONS (4)
  - Colour blindness [Not Recovered/Not Resolved]
  - Vision blurred [Not Recovered/Not Resolved]
  - Blindness transient [Recovered/Resolved]
  - Visual impairment [Recovered/Resolved with Sequelae]

NARRATIVE: CASE EVENT DATE: 20220801
